FAERS Safety Report 12109930 (Version 1)
Quarter: 2016Q1

REPORT INFORMATION
  Report Type: Spontaneous
  Country: MX (occurrence: MX)
  Receive Date: 20160224
  Receipt Date: 20160224
  Transmission Date: 20160526
  Serious: Yes (Hospitalization, Other)
  Sender: FDA-Public Use
  Company Number: MX-PFIZER INC-2016094407

PATIENT
  Sex: Female

DRUGS (2)
  1. CYTOTEC [Suspect]
     Active Substance: MISOPROSTOL
     Indication: ABORTION INDUCED
     Dosage: UNK
     Route: 048
  2. CYTOTEC [Suspect]
     Active Substance: MISOPROSTOL
     Dosage: UNK
     Route: 067

REACTIONS (4)
  - Gastric ulcer [Unknown]
  - Drug ineffective for unapproved indication [Unknown]
  - Abdominal pain [Not Recovered/Not Resolved]
  - Gastritis [Not Recovered/Not Resolved]
